FAERS Safety Report 4361786-8 (Version None)
Quarter: 2004Q2

REPORT INFORMATION
  Report Type: 
  Country: None (occurrence: None)
  Receive Date: 20040521
  Receipt Date: 20040312
  Transmission Date: 20050107
  Serious: No
  Sender: FDA-Public Use
  Company Number: US-GLAXOSMITHKLINE-A0502577A

PATIENT
  Sex: Male

DRUGS (6)
  1. WELLBUTRIN [Suspect]
     Indication: DEPRESSION
     Dosage: 450MG PER DAY
     Route: 048
     Dates: start: 20040212
  2. BENADRYL [Suspect]
     Route: 065
  3. LIPITOR [Concomitant]
  4. ANTIHYPERTENSIVE [Concomitant]
  5. ARTHRITIS MEDICATION [Concomitant]
     Route: 048
  6. FLONASE [Concomitant]

REACTIONS (3)
  - DRY MOUTH [None]
  - DYSPHAGIA [None]
  - INSOMNIA [None]
